FAERS Safety Report 8021140-4 (Version None)
Quarter: 2012Q1

REPORT INFORMATION
  Report Type: 
  Country: None (occurrence: None)
  Receive Date: 20120104
  Receipt Date: 20111229
  Transmission Date: 20120608
  Serious: No
  Sender: FDA-Public Use
  Company Number: US-PFIZER INC-2011316549

PATIENT
  Sex: Female
  Weight: 49.887 kg

DRUGS (2)
  1. MESALAZINE [Concomitant]
     Indication: CROHN'S DISEASE
     Dosage: 500 MG, 3X/DAY
     Route: 048
  2. FLAGYL [Suspect]
     Indication: CROHN'S DISEASE
     Dosage: 250 MG, 3X/DAY
     Dates: start: 20111026, end: 20111102

REACTIONS (2)
  - RASH [None]
  - PRURITUS [None]
